FAERS Safety Report 15371094 (Version 6)
Quarter: 2019Q3

REPORT INFORMATION
  Report Type: Report from Study
  Country: US (occurrence: US)
  Receive Date: 20180911
  Receipt Date: 20190926
  Transmission Date: 20191004
  Serious: Yes (Hospitalization, Other)
  Sender: FDA-Public Use
  Company Number: US-JNJFOC-20180527201

PATIENT
  Age: 87 Year
  Sex: Male

DRUGS (43)
  1. IMBRUVICA [Suspect]
     Active Substance: IBRUTINIB
     Indication: WALDENSTROM^S MACROGLOBULINAEMIA
     Route: 048
     Dates: start: 20180524, end: 20181128
  2. IMBRUVICA [Suspect]
     Active Substance: IBRUTINIB
     Route: 048
     Dates: start: 20180630, end: 20180810
  3. IMBRUVICA [Suspect]
     Active Substance: IBRUTINIB
     Route: 048
     Dates: start: 20180811
  4. COSAMINE [Concomitant]
  5. LABETALOL HCL [Concomitant]
     Active Substance: LABETALOL HYDROCHLORIDE
  6. FLONASE [Concomitant]
     Active Substance: FLUTICASONE PROPIONATE
  7. SODIUM FLUORIDE. [Concomitant]
     Active Substance: SODIUM FLUORIDE
  8. IMBRUVICA [Suspect]
     Active Substance: IBRUTINIB
     Route: 048
     Dates: start: 20180310, end: 20180523
  9. IMBRUVICA [Suspect]
     Active Substance: IBRUTINIB
     Dosage: 140 MG, QD
     Route: 048
     Dates: start: 20180110, end: 20180810
  10. IMBRUVICA [Suspect]
     Active Substance: IBRUTINIB
     Route: 048
     Dates: start: 20180524, end: 20180629
  11. CYANOCOBALAMIN. [Concomitant]
     Active Substance: CYANOCOBALAMIN
  12. DEXILANT [Concomitant]
     Active Substance: DEXLANSOPRAZOLE
  13. APOAEQUORIN [Concomitant]
  14. VITAMIN B [Concomitant]
     Active Substance: VITAMIN B
  15. PRILOSEC [Concomitant]
     Active Substance: OMEPRAZOLE MAGNESIUM
  16. CURCUMA LONGA RHIZOME [Concomitant]
     Active Substance: HERBALS\TURMERIC
  17. MULTIVITAMINS [Concomitant]
     Active Substance: VITAMINS
  18. ASPIRIN. [Concomitant]
     Active Substance: ASPIRIN
     Dosage: 81 MG, UNK
  19. SINGULAIR [Concomitant]
     Active Substance: MONTELUKAST SODIUM
  20. VELTRIX [Concomitant]
     Active Substance: LIDOCAINE\MENTHOL
  21. METOPROLOL. [Concomitant]
     Active Substance: METOPROLOL
     Dosage: UNK
  22. IMBRUVICA [Suspect]
     Active Substance: IBRUTINIB
     Route: 048
     Dates: end: 20180523
  23. IMBRUVICA [Suspect]
     Active Substance: IBRUTINIB
     Route: 048
     Dates: start: 20180810
  24. FLOMAX [Concomitant]
     Active Substance: TAMSULOSIN HYDROCHLORIDE
  25. ALLEGRA [Concomitant]
     Active Substance: FEXOFENADINE HYDROCHLORIDE
  26. HCTZ [Concomitant]
     Active Substance: HYDROCHLOROTHIAZIDE
  27. PEPCID                             /00305201/ [Concomitant]
     Active Substance: ALUMINUM HYDROXIDE\MAGNESIUM CARBONATE
     Dosage: UNK
  28. IMBRUVICA [Suspect]
     Active Substance: IBRUTINIB
     Indication: WALDENSTROM^S MACROGLOBULINAEMIA
     Dosage: 420 MG, QD
     Route: 048
     Dates: start: 20180110, end: 20180309
  29. ZOCOR [Concomitant]
     Active Substance: SIMVASTATIN
  30. VALACYCLOVIR HCL [Concomitant]
     Active Substance: VALACYCLOVIR HYDROCHLORIDE
  31. IMBRUVICA [Suspect]
     Active Substance: IBRUTINIB
     Route: 048
     Dates: start: 20180524, end: 20180729
  32. MAGNESIUM [Concomitant]
     Active Substance: MAGNESIUM
  33. AMOXICILLIN. [Concomitant]
     Active Substance: AMOXICILLIN
  34. ARICEPT [Concomitant]
     Active Substance: DONEPEZIL HYDROCHLORIDE
     Dosage: UNK
  35. DEXTROMETHORPHAN HYDROBROMIDE W/GUAIFENESIN [Concomitant]
     Active Substance: DEXTROMETHORPHAN HYDROBROMIDE\GUAIFENESIN
     Dosage: UNK
  36. IMBRUVICA [Suspect]
     Active Substance: IBRUTINIB
     Route: 048
     Dates: start: 20180630, end: 20180809
  37. IMBRUVICA [Suspect]
     Active Substance: IBRUTINIB
     Route: 048
     Dates: start: 20180809, end: 2018
  38. IMBRUVICA [Suspect]
     Active Substance: IBRUTINIB
     Route: 048
     Dates: start: 20181129
  39. LOSARTAN. [Concomitant]
     Active Substance: LOSARTAN
  40. PROBIOTIC                          /06395501/ [Concomitant]
     Active Substance: BIFIDOBACTERIUM ANIMALIS LACTIS
  41. COQ10 [Concomitant]
     Active Substance: UBIDECARENONE
  42. COLACE [Concomitant]
     Active Substance: DOCUSATE SODIUM
  43. BENZONATATE. [Concomitant]
     Active Substance: BENZONATATE

REACTIONS (13)
  - Arthritis [Unknown]
  - Body temperature increased [Unknown]
  - Amnesia [Unknown]
  - Incorrect dose administered [Unknown]
  - Cough [Unknown]
  - Off label use [Unknown]
  - Cholelithiasis obstructive [Unknown]
  - Medical procedure [Unknown]
  - Sepsis [Unknown]
  - Depression [Unknown]
  - Fatigue [Unknown]
  - Muscle spasms [Not Recovered/Not Resolved]
  - Rib fracture [Unknown]

NARRATIVE: CASE EVENT DATE: 2018
